FAERS Safety Report 9839872 (Version 1)
Quarter: 2014Q1

REPORT INFORMATION
  Report Type: Report from Study
  Country: AR (occurrence: AR)
  Receive Date: 20140124
  Receipt Date: 20140124
  Transmission Date: 20141002
  Serious: Yes (Other)
  Sender: FDA-Public Use
  Company Number: PHHY2014AR007604

PATIENT
  Age: 67 Year
  Sex: Male

DRUGS (2)
  1. DIOVAN D [Suspect]
     Indication: HYPERTENSION
     Dosage: 0.5 DF (160MG), IN HOTTEST DAYS
  2. DIOVAN D [Suspect]
     Dosage: 1 DF (160MG), DAILY
     Route: 048

REACTIONS (3)
  - Diabetes mellitus [Unknown]
  - Blood pressure decreased [Unknown]
  - Wrong technique in drug usage process [Unknown]
